FAERS Safety Report 8535243-9 (Version None)
Quarter: 2012Q3

REPORT INFORMATION
  Report Type: 
  Country: None (occurrence: None)
  Receive Date: 20120725
  Receipt Date: 20120720
  Transmission Date: 20120928
  Serious: Yes (Life-Threatening, Hospitalization)
  Sender: FDA-Public Use
  Company Number: IT-AMGEN-ITASP2012040835

PATIENT
  Age: 74 Year
  Sex: Male

DRUGS (3)
  1. NPLATE [Suspect]
     Indication: THROMBOCYTOPENIA
     Dosage: 75 MUG, QWK
     Route: 058
     Dates: start: 20120524, end: 20120605
  2. PREDNISONE TAB [Concomitant]
     Dosage: 25 MG, UNK
     Route: 048
  3. FOLIC ACID [Concomitant]

REACTIONS (2)
  - THROMBOSIS MESENTERIC VESSEL [None]
  - ILEECTOMY [None]
